FAERS Safety Report 12846726 (Version 2)
Quarter: 2016Q4

REPORT INFORMATION
  Report Type: Spontaneous
  Country: US (occurrence: US)
  Receive Date: 20161014
  Receipt Date: 20161104
  Transmission Date: 20170207
  Serious: No
  Sender: FDA-Public Use
  Company Number: US-PFIZER INC-2016477916

PATIENT
  Age: 61 Year
  Sex: Male

DRUGS (1)
  1. METHOTREXATE SODIUM. [Suspect]
     Active Substance: METHOTREXATE SODIUM
     Indication: RHEUMATOID ARTHRITIS
     Dosage: 0.6 ML, ONCE WEEKLY
     Route: 030
     Dates: start: 20140115

REACTIONS (3)
  - Nausea [Recovered/Resolved]
  - Arthralgia [Recovering/Resolving]
  - Pain [Recovered/Resolved]
